FAERS Safety Report 22398814 (Version 7)
Quarter: 2023Q4

REPORT INFORMATION
  Report Type: Spontaneous
  Country: CA (occurrence: CA)
  Receive Date: 20230602
  Receipt Date: 20231121
  Transmission Date: 20240109
  Serious: Yes (Other)
  Sender: FDA-Public Use
  Company Number: CA-CELLTRION INC.-2023CA005014

PATIENT

DRUGS (20)
  1. YUFLYMA [Suspect]
     Active Substance: ADALIMUMAB-AATY
     Indication: Colitis ulcerative
     Dosage: 160 MG WEEK 0
     Route: 058
     Dates: start: 20230303
  2. YUFLYMA [Suspect]
     Active Substance: ADALIMUMAB-AATY
     Dosage: 80 MG WEEK 2 (2 DOSES)
     Route: 058
     Dates: start: 20230317
  3. YUFLYMA [Suspect]
     Active Substance: ADALIMUMAB-AATY
     Dosage: WEEK 4: 40MG SC AND ONGOING 40MG SC Q 2 WEEKS (1 DOSE)
     Route: 058
     Dates: start: 20230331
  4. YUFLYMA [Suspect]
     Active Substance: ADALIMUMAB-AATY
     Dosage: 40 MG, WEEKS-WEEKLY (1 DOSE)
     Route: 058
     Dates: start: 20230407
  5. YUFLYMA [Suspect]
     Active Substance: ADALIMUMAB-AATY
     Dosage: 1 DOSE (MOST RECENT DOSE), 40MG ONCE INJECTION IN STOMACH
     Dates: start: 20230421
  6. YUFLYMA [Suspect]
     Active Substance: ADALIMUMAB-AATY
     Dosage: 40 MG , WEEKS-WEEKLY (40 MG, Q2WEEKS)
     Route: 058
     Dates: start: 20230303
  7. YUFLYMA [Suspect]
     Active Substance: ADALIMUMAB-AATY
     Dosage: 1 SYRINGE
     Dates: start: 20230505
  8. YUFLYMA [Suspect]
     Active Substance: ADALIMUMAB-AATY
     Dosage: 40 MG, WEEKLY (QWEEKLY)
     Route: 058
     Dates: start: 20230522
  9. MESALAMINE [Concomitant]
     Active Substance: MESALAMINE
     Dosage: UNK, PRN
  10. ORTHO EVRA [Concomitant]
     Active Substance: ETHINYL ESTRADIOL\NORELGESTROMIN
  11. ATIVAN [Concomitant]
     Active Substance: LORAZEPAM
     Dosage: UNK, PRN
  12. TYLENOL [Concomitant]
     Active Substance: ACETAMINOPHEN
     Dosage: UNK, PRN
  13. LORAZEPAM [Concomitant]
     Active Substance: LORAZEPAM
     Indication: Anxiety disorder
     Dosage: 0.5MG - 1MG
  14. ZOLOFT [Concomitant]
     Active Substance: SERTRALINE HYDROCHLORIDE
     Dosage: 200 MG, QD
  15. CYCLOBENZAPRINE [Concomitant]
     Active Substance: CYCLOBENZAPRINE
     Indication: Ankylosing spondylitis
     Dosage: SHE TOOK 1-2 TIMES
     Dates: start: 202306
  16. VENLAFAXINE [Concomitant]
     Active Substance: VENLAFAXINE HYDROCHLORIDE
     Dosage: UNK
     Dates: start: 202307
  17. SERTRALINE [Concomitant]
     Active Substance: SERTRALINE HYDROCHLORIDE
  18. ROBAXACET [Concomitant]
     Active Substance: ACETAMINOPHEN\METHOCARBAMOL
     Dosage: UNK, PRN
  19. DICLOFENAC [Concomitant]
     Active Substance: DICLOFENAC
  20. SERTRALINE HYDROCHLORIDE [Concomitant]
     Active Substance: SERTRALINE HYDROCHLORIDE
     Dosage: 200.0 MILLIGRAM

REACTIONS (18)
  - Haematochezia [Not Recovered/Not Resolved]
  - Myalgia [Not Recovered/Not Resolved]
  - Increased viscosity of upper respiratory secretion [Not Recovered/Not Resolved]
  - Nasal congestion [Not Recovered/Not Resolved]
  - Nightmare [Not Recovered/Not Resolved]
  - Diarrhoea [Not Recovered/Not Resolved]
  - Nausea [Not Recovered/Not Resolved]
  - COVID-19 [Not Recovered/Not Resolved]
  - Injection site bruising [Not Recovered/Not Resolved]
  - Injection site pain [Not Recovered/Not Resolved]
  - Injection site swelling [Not Recovered/Not Resolved]
  - Insomnia [Not Recovered/Not Resolved]
  - Fatigue [Not Recovered/Not Resolved]
  - Abdominal pain [Not Recovered/Not Resolved]
  - Therapy interrupted [Not Recovered/Not Resolved]
  - Product distribution issue [Not Recovered/Not Resolved]
  - Wrong technique in product usage process [Not Recovered/Not Resolved]
  - Drug ineffective [Unknown]

NARRATIVE: CASE EVENT DATE: 20230414
